FAERS Safety Report 6712697-1 (Version None)
Quarter: 2010Q2

REPORT INFORMATION
  Report Type: 
  Country: None (occurrence: None)
  Receive Date: 20100506
  Receipt Date: 20100428
  Transmission Date: 20101027
  Serious: Yes (Other)
  Sender: FDA-Public Use
  Company Number: JP-JNJFOC-20100406059

PATIENT

DRUGS (2)
  1. LEUSTATIN [Suspect]
     Indication: SARCOMA
     Route: 041
  2. CYTARABINE [Suspect]
     Indication: SARCOMA
     Route: 065

REACTIONS (5)
  - ARTHRALGIA [None]
  - HEADACHE [None]
  - MUSCULOSKELETAL STIFFNESS [None]
  - MYALGIA [None]
  - SEPSIS [None]
